FAERS Safety Report 17924103 (Version 1)
Quarter: 2020Q2

REPORT INFORMATION
  Report Type: Spontaneous
  Country: CN (occurrence: CN)
  Receive Date: 20200622
  Receipt Date: 20200622
  Transmission Date: 20200714
  Serious: Yes (Other)
  Sender: FDA-Public Use
  Company Number: CN-PFIZER INC-2020238590

PATIENT
  Age: 61 Year
  Sex: Female
  Weight: 50 kg

DRUGS (1)
  1. PIPERACILLIN/TAZOBACTAM [Suspect]
     Active Substance: PIPERACILLIN SODIUM\TAZOBACTAM SODIUM
     Indication: INFECTION
     Dosage: UNK
     Dates: start: 20200609

REACTIONS (2)
  - Condition aggravated [Unknown]
  - Pneumonia [Unknown]

NARRATIVE: CASE EVENT DATE: 202006
